FAERS Safety Report 4360857-X (Version None)
Quarter: 2004Q2

REPORT INFORMATION
  Report Type: 
  Country: None (occurrence: None)
  Receive Date: 20040520
  Receipt Date: 20040511
  Transmission Date: 20050107
  Serious: Yes (Death)
  Sender: FDA-Public Use
  Company Number: JP-BRISTOL-MYERS SQUIBB COMPANY-12589818

PATIENT
  Age: 53 Year
  Sex: Male

DRUGS (3)
  1. EFAVIRENZ CAPS [Suspect]
     Indication: HIV INFECTION
     Dosage: ONCE DAILY
     Route: 048
     Dates: start: 20031107, end: 20040331
  2. STAVUDINE [Concomitant]
     Indication: HIV INFECTION
     Dates: start: 20031107, end: 20040331
  3. LAMIVUDINE [Concomitant]
     Indication: HIV INFECTION
     Dates: start: 20031107, end: 20040331

REACTIONS (2)
  - LUNG NEOPLASM MALIGNANT [None]
  - RESPIRATORY FAILURE [None]
